FAERS Safety Report 5716170-9 (Version None)
Quarter: 2008Q2

REPORT INFORMATION
  Report Type: 
  Country: None (occurrence: None)
  Receive Date: 20080424
  Receipt Date: 20080415
  Transmission Date: 20081010
  Serious: Yes (Other)
  Sender: FDA-Public Use
  Company Number: PHBS2007JP20595

PATIENT
  Age: 64 Year
  Sex: Female

DRUGS (5)
  1. ZOMETA [Suspect]
     Indication: BREAST CANCER METASTATIC
     Route: 042
     Dates: start: 20070901
  2. XELODA [Concomitant]
     Dosage: 2400 MG, UNK
     Dates: start: 20070501
  3. BISPHOSPHONATES [Concomitant]
     Indication: BREAST CANCER METASTATIC
  4. HORMONES [Concomitant]
     Indication: BREAST CANCER METASTATIC
  5. AREDIA [Suspect]
     Dates: end: 20060823

REACTIONS (4)
  - HAEMATOCRIT DECREASED [None]
  - HAEMOGLOBIN DECREASED [None]
  - PERIOSTITIS [None]
  - RED BLOOD CELL COUNT DECREASED [None]
